FAERS Safety Report 9189448 (Version 1)
Quarter: 2013Q1

REPORT INFORMATION
  Report Type: Spontaneous
  Country: IE (occurrence: IE)
  Receive Date: 20130326
  Receipt Date: 20130326
  Transmission Date: 20140127
  Serious: Yes (Hospitalization)
  Sender: FDA-Public Use
  Company Number: PHHY2013IE003228

PATIENT
  Sex: Male

DRUGS (1)
  1. GILENYA [Suspect]
     Indication: RELAPSING-REMITTING MULTIPLE SCLEROSIS
     Dosage: 0.5 UG, QD
     Route: 048
     Dates: start: 20121207, end: 20130122

REACTIONS (3)
  - Irritable bowel syndrome [Recovered/Resolved]
  - Liver function test abnormal [Unknown]
  - Weight decreased [Unknown]
